FAERS Safety Report 13644777 (Version 1)
Quarter: 2017Q2

REPORT INFORMATION
  Report Type: Spontaneous
  Country: US (occurrence: US)
  Receive Date: 20170612
  Receipt Date: 20170612
  Transmission Date: 20170830
  Serious: No
  Sender: FDA-Public Use
  Company Number: US-ROCHE-1228324

PATIENT
  Sex: Female

DRUGS (1)
  1. XELODA [Suspect]
     Active Substance: CAPECITABINE
     Indication: COLON CANCER
     Dosage: 4 (500 MG)
     Route: 048

REACTIONS (3)
  - Vulvovaginal inflammation [Unknown]
  - Dyspepsia [Unknown]
  - Rectal lesion [Unknown]
